FAERS Safety Report 18856708 (Version 7)
Quarter: 2021Q4

REPORT INFORMATION
  Report Type: Report from Study
  Country: US (occurrence: US)
  Receive Date: 20210207
  Receipt Date: 20211219
  Transmission Date: 20220303
  Serious: Yes (Other)
  Sender: FDA-Public Use
  Company Number: US-TAKEDA-2021TUS005319

PATIENT
  Sex: Female
  Weight: 86 kg

DRUGS (16)
  1. HUMAN IMMUNOGLOBULIN G [Suspect]
     Active Substance: HUMAN IMMUNOGLOBULIN G
     Indication: Combined immunodeficiency
     Dosage: 35 GRAM, Q4WEEKS
     Route: 042
     Dates: start: 20130808
  2. HUMAN IMMUNOGLOBULIN G [Suspect]
     Active Substance: HUMAN IMMUNOGLOBULIN G
     Indication: Combined immunodeficiency
  3. BENADRYL [Suspect]
     Active Substance: DIPHENHYDRAMINE HYDROCHLORIDE
     Indication: Product used for unknown indication
     Dosage: UNK
     Route: 065
  4. QNASL [Concomitant]
     Active Substance: BECLOMETHASONE DIPROPIONATE
  5. AZITHROMYCIN [Concomitant]
     Active Substance: AZITHROMYCIN
  6. IBUPROFEN [Concomitant]
     Active Substance: IBUPROFEN
  7. FISH OIL [Concomitant]
     Active Substance: FISH OIL
  8. ESTRADIOL [Concomitant]
     Active Substance: ESTRADIOL
  9. ACETAMINOPHEN [Concomitant]
     Active Substance: ACETAMINOPHEN
  10. DIPHENHYDRAMINE [Concomitant]
     Active Substance: DIPHENHYDRAMINE
  11. SODIUM CHLORIDE [Concomitant]
     Active Substance: SODIUM CHLORIDE
  12. EPINEPHRINE [Concomitant]
     Active Substance: EPINEPHRINE
  13. HEPARIN [Concomitant]
     Active Substance: HEPARIN SODIUM
  14. PREDNISONE [Concomitant]
     Active Substance: PREDNISONE
     Route: 065
  15. RITUXAN [Concomitant]
     Active Substance: RITUXIMAB
     Route: 065
  16. LOESTRIN NOS [Concomitant]
     Active Substance: ETHINYL ESTRADIOL\NORETHINDRONE ACETATE
     Route: 065

REACTIONS (11)
  - B-cell lymphoma [Unknown]
  - Loss of consciousness [Unknown]
  - Sunburn [Unknown]
  - Red man syndrome [Unknown]
  - Skin exfoliation [Unknown]
  - Condition aggravated [Unknown]
  - Rash pruritic [Unknown]
  - Urticaria [Unknown]
  - Pyrexia [Unknown]
  - Hypoaesthesia [Unknown]
  - Rash [Unknown]
